FAERS Safety Report 5445761-8 (Version None)
Quarter: 2007Q3

REPORT INFORMATION
  Report Type: 
  Country: None (occurrence: None)
  Receive Date: 20070904
  Receipt Date: 20070822
  Transmission Date: 20080115
  Serious: Yes (Hospitalization)
  Sender: FDA-Public Use
  Company Number: 2007326900

PATIENT
  Age: 56 Year
  Sex: Female

DRUGS (3)
  1. ROGAINE [Suspect]
     Indication: ALOPECIA
     Dosage: 1 ML BID (1 ML, 2 IN 1 D), TOPICAL
     Route: 061
     Dates: start: 20070123, end: 20070316
  2. METOPROLOL TARTRATE [Concomitant]
  3. ESOMEPRAZOLE (ESOMEPRAZOLE) [Concomitant]

REACTIONS (5)
  - ATRIAL FIBRILLATION [None]
  - FEELING ABNORMAL [None]
  - HYPOKALAEMIA [None]
  - PALPITATIONS [None]
  - TACHYCARDIA [None]
